FAERS Safety Report 8924482 (Version 1)
Quarter: 2012Q4

REPORT INFORMATION
  Report Type: 
  Country: US (occurrence: US)
  Receive Date: 20121126
  Receipt Date: 20121126
  Transmission Date: 20130627
  Serious: No
  Sender: FDA-Public Use
  Company Number: US-009507513-1211USA007714

PATIENT
  Age: 36 Year
  Sex: Female

DRUGS (2)
  1. MAXALT MLT [Suspect]
     Indication: MIGRAINE
     Dosage: UNK
     Route: 048
     Dates: start: 20120926
  2. MAXALT [Suspect]
     Route: 048

REACTIONS (3)
  - Oropharyngeal pain [Unknown]
  - Choking sensation [Unknown]
  - Drug dispensing error [Unknown]
